FAERS Safety Report 6594753-4 (Version None)
Quarter: 2010Q1

REPORT INFORMATION
  Report Type: 
  Country: None (occurrence: None)
  Receive Date: 20100222
  Receipt Date: 20100212
  Transmission Date: 20100710
  Serious: Yes (Life-Threatening, Other)
  Sender: FDA-Public Use
  Company Number: GB-PFIZER INC-2010018720

PATIENT
  Age: 22 Year
  Sex: Female

DRUGS (4)
  1. CHAMPIX [Suspect]
     Indication: SMOKING CESSATION THERAPY
     Dosage: UNK
     Dates: start: 20100118, end: 20100125
  2. NORDETTE-28 [Concomitant]
     Dosage: UNK
     Route: 048
  3. TRIMETHOPRIM [Concomitant]
     Indication: URINARY TRACT INFECTION
     Dosage: 200 MG, 2X/DAY
     Route: 048
     Dates: start: 20091218, end: 20091221
  4. VENTOLIN [Concomitant]
     Dosage: UNK
     Route: 055

REACTIONS (3)
  - DEPRESSED MOOD [None]
  - SOCIAL AVOIDANT BEHAVIOUR [None]
  - THINKING ABNORMAL [None]
